FAERS Safety Report 6419590-2 (Version None)
Quarter: 2009Q4

REPORT INFORMATION
  Report Type: 
  Country: None (occurrence: None)
  Receive Date: 20091013
  Receipt Date: 20090721
  Transmission Date: 20100525
  Serious: No
  Sender: FDA-Public Use
  Company Number: 2009BM000168

PATIENT
  Age: 18 Year
  Sex: Male
  Weight: 53.8873 kg

DRUGS (5)
  1. KUVAN [Suspect]
     Indication: PHENYLKETONURIA
     Dosage: 1100 MG;QD;PO
     Route: 048
     Dates: start: 20090620, end: 20090717
  2. KUVAN [Suspect]
     Indication: PHENYLKETONURIA
     Dosage: 1100 MG;QD;PO
     Route: 048
     Dates: start: 20090718, end: 20090720
  3. KUVAN [Suspect]
     Indication: PHENYLKETONURIA
     Dosage: 1100 MG;QD;PO
     Route: 048
     Dates: start: 20090721
  4. MULTI-VITAMIN [Concomitant]
  5. VITAMIN D [Concomitant]

REACTIONS (1)
  - WRONG TECHNIQUE IN DRUG USAGE PROCESS [None]
